FAERS Safety Report 4462228-4 (Version None)
Quarter: 2004Q3

REPORT INFORMATION
  Report Type: 
  Country: None (occurrence: None)
  Receive Date: 20040924
  Receipt Date: 20040914
  Transmission Date: 20050211
  Serious: Yes (Other)
  Sender: FDA-Public Use
  Company Number: 2004233674US

PATIENT
  Age: 66 Year
  Sex: Female
  Weight: 129.3 kg

DRUGS (7)
  1. DETROL LA [Suspect]
     Indication: HYPERTONIC BLADDER
     Dosage: SEE IMAGE
     Dates: end: 20040101
  2. NEURONTIN [Concomitant]
  3. COUMADIN [Concomitant]
  4. CELEXA [Concomitant]
  5. TRAZODONE HCL [Concomitant]
  6. HYDROCHLOROTHIAZIDE [Concomitant]
  7. CLEMASTINE (CLEMASTINE) [Concomitant]

REACTIONS (10)
  - CONSTIPATION [None]
  - DIVERTICULITIS [None]
  - DIVERTICULUM [None]
  - FEELING ABNORMAL [None]
  - GASTROINTESTINAL PAIN [None]
  - LARGE INTESTINAL ULCER [None]
  - MUSCLE CRAMP [None]
  - NAUSEA [None]
  - PAIN [None]
  - REACTION TO COLOURING [None]
